FAERS Safety Report 10210922 (Version 2)
Quarter: 2014Q2

REPORT INFORMATION
  Report Type: Report from Study
  Country: US (occurrence: US)
  Receive Date: 20140602
  Receipt Date: 20140616
  Transmission Date: 20141212
  Serious: Yes (Hospitalization)
  Sender: FDA-Public Use
  Company Number: PHEH2014US010794

PATIENT
  Sex: Male
  Weight: 72.56 kg

DRUGS (8)
  1. TOBI PODHALER [Suspect]
     Indication: CYSTIC FIBROSIS
     Dosage: 112 MG, TWICE A DAY
     Route: 055
  2. TOBI PODHALER [Suspect]
     Indication: LUNG DISORDER
  3. TOBRAMYCIN [Suspect]
     Dosage: UKN
     Route: 042
     Dates: start: 201401
  4. PULMOZYME [Concomitant]
  5. SINGULAIR [Concomitant]
  6. ADVAIR [Concomitant]
  7. HYPERTONIC SALINE SOLUTION [Concomitant]
  8. MULTIVIT//VITAMINS NOS [Concomitant]

REACTIONS (1)
  - Renal failure [Recovered/Resolved]
